FAERS Safety Report 17058897 (Version 2)
Quarter: 2019Q4

REPORT INFORMATION
  Report Type: Spontaneous
  Country: US (occurrence: US)
  Receive Date: 20191121
  Receipt Date: 20191202
  Transmission Date: 20200122
  Serious: No
  Sender: FDA-Public Use
  Company Number: US-PFIZER INC-2019501389

PATIENT
  Age: 88 Year
  Sex: Female

DRUGS (1)
  1. BOSULIF [Suspect]
     Active Substance: BOSUTINIB MONOHYDRATE
     Indication: MALIGNANT MELANOMA
     Dosage: 100 MG, CYCLIC (ONE TABLET (100 MG) BY MOUTH DAILY WITH FOOD FOR DAYS 1-14 OF EACH 21-DAY CYCLE)
     Route: 048

REACTIONS (2)
  - Product use in unapproved indication [Unknown]
  - Off label use [Unknown]
